FAERS Safety Report 9852462 (Version 1)
Quarter: 2014Q1

REPORT INFORMATION
  Report Type: Spontaneous
  Country: US (occurrence: None)
  Receive Date: 20140128
  Receipt Date: 20140128
  Transmission Date: 20141002
  Serious: Yes (Disabling)
  Sender: FDA-Public Use
  Company Number: None

PATIENT
  Age: 35 Year
  Sex: Female
  Weight: 90.72 kg

DRUGS (1)
  1. MIRENA [Suspect]
     Indication: CONTRACEPTION

REACTIONS (28)
  - Pollakiuria [None]
  - Blindness [None]
  - Photophobia [None]
  - Pain [None]
  - Nausea [None]
  - Vomiting [None]
  - Back pain [None]
  - Abdominal pain upper [None]
  - Constipation [None]
  - Contusion [None]
  - Swelling face [None]
  - Swollen tongue [None]
  - Ageusia [None]
  - Insomnia [None]
  - Anxiety [None]
  - Palpitations [None]
  - Palpitations [None]
  - Amnesia [None]
  - Confusional state [None]
  - Depression [None]
  - Hiccups [None]
  - Hyperhidrosis [None]
  - Dizziness [None]
  - Suicidal ideation [None]
  - Malaise [None]
  - Breast pain [None]
  - Breast swelling [None]
  - Dry eye [None]
